FAERS Safety Report 6843065-X (Version None)
Quarter: 2010Q3

REPORT INFORMATION
  Report Type: 
  Country: None (occurrence: None)
  Receive Date: 20100712
  Receipt Date: 20100701
  Transmission Date: 20110219
  Serious: Yes (Hospitalization)
  Sender: FDA-Public Use
  Company Number: DSU-2008-00329

PATIENT
  Sex: Male
  Weight: 82.1011 kg

DRUGS (19)
  1. BENICAR [Suspect]
     Indication: HYPERTENSION
     Dosage: 40 MG (40 MG, QD), PER ORAL; 40 MG (40 MG, QD), PER ORAL; 40 MG (40 MG, QD), PER ORAL
     Route: 048
     Dates: start: 20080303, end: 20080303
  2. BENICAR [Suspect]
     Indication: HYPERTENSION
     Dosage: 40 MG (40 MG, QD), PER ORAL; 40 MG (40 MG, QD), PER ORAL; 40 MG (40 MG, QD), PER ORAL
     Route: 048
     Dates: end: 20100513
  3. BENICAR [Suspect]
     Indication: HYPERTENSION
     Dosage: 40 MG (40 MG, QD), PER ORAL; 40 MG (40 MG, QD), PER ORAL; 40 MG (40 MG, QD), PER ORAL
     Route: 048
     Dates: start: 20100519
  4. REMERON [Concomitant]
  5. DIOVAN [Concomitant]
  6. TRICOR [Concomitant]
  7. DIAZEPAM [Concomitant]
  8. METOPROLOL SUCCINATE [Concomitant]
  9. PLAVIX (CLOPIDOGREL SULFATE) (CLOPIDOPGREL SULFATE) [Concomitant]
  10. ECOTRIN (ACETYLSALICYLIC ACID (ACETYLSALICYLIC ACID) [Concomitant]
  11. LIPITOR (ATORVASTATIN CALCIUM) (ATORVASTATIN CALCIUM) [Concomitant]
  12. PROTONIX [Concomitant]
  13. TYLENOL (PARACETAMOL) (PARACETAMOL) [Concomitant]
  14. RESTATSIS (CICLOSPORIN) (CICLOSPORIN) [Concomitant]
  15. TOBRADEX [Concomitant]
  16. PROTOPIC (TACROLIMUS) (TACROLIMUS) [Concomitant]
  17. VITAMINS (ERGOCALCIFEROL, ASCORBIC ACID, PYRIDOXINE HYDROCHLORIDE, THI [Concomitant]
  18. FLAX SEED OIL (LINUM USITATISSIMUM SEED OIL) (LINUM USITATISSIMUM SEED [Concomitant]
  19. BLEPHAMIDE (PREDNISOLONE ACETATE, SULFACETAMIDE SODIUM) (PREDNISOLONE [Concomitant]

REACTIONS (6)
  - ARTERIAL STENT INSERTION [None]
  - CONDITION AGGRAVATED [None]
  - DRY EYE [None]
  - INSOMNIA [None]
  - NERVOUSNESS [None]
  - POLLAKIURIA [None]
